FAERS Safety Report 25570292 (Version 1)
Quarter: 2025Q3

REPORT INFORMATION
  Report Type: Report from Study
  Country: CL (occurrence: CL)
  Receive Date: 20250717
  Receipt Date: 20250717
  Transmission Date: 20251021
  Serious: Yes (Other)
  Sender: SANDOZ
  Company Number: CL-NOVPHSZ-PHHY2018CL165689

PATIENT
  Age: 9 Year
  Sex: Male
  Weight: 52 kg

DRUGS (2)
  1. OMNITROPE [Suspect]
     Active Substance: SOMATROPIN
     Indication: Growth hormone deficiency
     Dosage: 5 MG, QD, 0.85 MG ? 5 MG
     Route: 058
     Dates: start: 20180719, end: 20181001
  2. OMNITROPE [Suspect]
     Active Substance: SOMATROPIN
     Dosage: 5.7 IU, DAILY
     Route: 058

REACTIONS (4)
  - Hypoaesthesia [Not Recovered/Not Resolved]
  - Partial seizures [Not Recovered/Not Resolved]
  - Iron deficiency [Not Recovered/Not Resolved]
  - Acne [Unknown]

NARRATIVE: CASE EVENT DATE: 20180820
